FAERS Safety Report 7750446-9 (Version None)
Quarter: 2011Q3

REPORT INFORMATION
  Report Type: 
  Country: None (occurrence: None)
  Receive Date: 20110914
  Receipt Date: 20110909
  Transmission Date: 20111222
  Serious: Yes (Death, Other)
  Sender: FDA-Public Use
  Company Number: FR-ELI_LILLY_AND_COMPANY-FR201109002237

PATIENT
  Sex: Female

DRUGS (2)
  1. GEMZAR [Suspect]
     Indication: BREAST CANCER METASTATIC
     Dosage: UNK
     Route: 042
     Dates: start: 20110703, end: 20110710
  2. ENANTON [Concomitant]
     Dosage: 11.25 MG, UNK
     Route: 058

REACTIONS (3)
  - ANGIOEDEMA [None]
  - FACE OEDEMA [None]
  - RESPIRATORY ARREST [None]
